FAERS Safety Report 21217131 (Version 1)
Quarter: 2022Q3

REPORT INFORMATION
  Report Type: Spontaneous
  Country: US (occurrence: None)
  Receive Date: 20220816
  Receipt Date: 20220816
  Transmission Date: 20221027
  Serious: No
  Sender: FDA-Public Use
  Company Number: US-ROCHE-3012657

PATIENT
  Sex: Female

DRUGS (1)
  1. ALECENSA [Suspect]
     Active Substance: ALECTINIB HYDROCHLORIDE
     Indication: Lung neoplasm malignant
     Dosage: 3 CAPSULES TWICE DAILY
     Route: 048
     Dates: start: 202103

REACTIONS (3)
  - Fatigue [Unknown]
  - Cerebral disorder [Unknown]
  - Skin exfoliation [Unknown]
